FAERS Safety Report 5637043-6 (Version None)
Quarter: 2008Q1

REPORT INFORMATION
  Report Type: 
  Country: None (occurrence: None)
  Receive Date: 20080221
  Receipt Date: 20080212
  Transmission Date: 20080703
  Serious: Yes (Hospitalization)
  Sender: FDA-Public Use
  Company Number: 163-21880-08020647

PATIENT
  Age: 50 Year
  Sex: Male
  Weight: 71 kg

DRUGS (13)
  1. REVLIMID [Suspect]
     Indication: AMYLOIDOSIS
     Dosage: 15 MG, X 21 DAYS, ORAL
     Route: 048
     Dates: start: 20080112, end: 20080131
  2. DEXAMETHASONE TAB [Suspect]
     Indication: AMYLOIDOSIS
     Dosage: 40 MG, DAYS 1,  8, 15 + 22, UNKNOWN
     Dates: start: 20080112, end: 20080202
  3. CYTOXAN [Suspect]
     Indication: AMYLOIDOSIS
     Dosage: 550 MG, DAYS 1, 8, + 15, UNKNOWN
     Dates: start: 20080112, end: 20080126
  4. LEVAQUIN [Suspect]
     Indication: COUGH
     Dosage: 250 MG, DAILY, ORAL
     Route: 048
     Dates: start: 20080128, end: 20080131
  5. LEVAQUIN [Suspect]
     Indication: PHARYNGOLARYNGEAL PAIN
     Dosage: 250 MG, DAILY, ORAL
     Route: 048
     Dates: start: 20080128, end: 20080131
  6. HEPARIN [Concomitant]
  7. LASIX [Concomitant]
  8. PROCHLORPERAZINE MALEATE [Concomitant]
  9. SYNTHROID [Concomitant]
  10. ACYCLOVIR [Concomitant]
  11. OMEPRAZOLE [Concomitant]
  12. POTASSIUM CHLORIDE [Concomitant]
  13. ASPIRIN [Concomitant]

REACTIONS (11)
  - ATROPHY [None]
  - COUGH [None]
  - DRUG TOXICITY [None]
  - HAEMOGLOBIN DECREASED [None]
  - LIP HAEMORRHAGE [None]
  - LIPASE INCREASED [None]
  - NAIL DISORDER [None]
  - PHARYNGOLARYNGEAL PAIN [None]
  - PLATELET COUNT DECREASED [None]
  - RED BLOOD CELL COUNT DECREASED [None]
  - STEVENS-JOHNSON SYNDROME [None]
